FAERS Safety Report 19893827 (Version 2)
Quarter: 2021Q4

REPORT INFORMATION
  Report Type: Spontaneous
  Country: US (occurrence: US)
  Receive Date: 20210928
  Receipt Date: 20211011
  Transmission Date: 20220303
  Serious: Yes (Other)
  Sender: FDA-Public Use
  Company Number: 2021A735677

PATIENT
  Age: 1025 Month
  Sex: Female
  Weight: 72.6 kg

DRUGS (2)
  1. SYMBICORT [Suspect]
     Active Substance: BUDESONIDE\FORMOTEROL FUMARATE DIHYDRATE
     Indication: Chronic obstructive pulmonary disease
     Dosage: 160/4.5MCG TWO TIMES A DAY
     Route: 055
     Dates: start: 20210810
  2. SYMBICORT [Suspect]
     Active Substance: BUDESONIDE\FORMOTEROL FUMARATE DIHYDRATE
     Indication: Total lung capacity decreased
     Dosage: 160/4.5MCG TWO TIMES A DAY
     Route: 055
     Dates: start: 20210810

REACTIONS (5)
  - Intellectual disability [Unknown]
  - Dyspnoea [Unknown]
  - Product packaging issue [Unknown]
  - Product prescribing error [Unknown]
  - Product use issue [Unknown]

NARRATIVE: CASE EVENT DATE: 20210801
